FAERS Safety Report 6745869-0 (Version None)
Quarter: 2010Q2

REPORT INFORMATION
  Report Type: 
  Country: None (occurrence: None)
  Receive Date: 20100528
  Receipt Date: 20100525
  Transmission Date: 20101027
  Serious: Yes (Hospitalization)
  Sender: FDA-Public Use
  Company Number: US-BRISTOL-MYERS SQUIBB COMPANY-15120280

PATIENT
  Age: 72 Year
  Sex: Male

DRUGS (10)
  1. CARBOPLATIN [Suspect]
     Indication: TRANSITIONAL CELL CARCINOMA
     Dates: start: 20100422
  2. ABRAXANE [Suspect]
     Indication: TRANSITIONAL CELL CARCINOMA
     Dates: start: 20100422
  3. GEMCITABINE HCL [Suspect]
     Indication: TRANSITIONAL CELL CARCINOMA
     Dates: start: 20100422
  4. ALLOPURINOL [Concomitant]
     Route: 048
  5. CALCIUM CARBONATE [Concomitant]
  6. METOPROLOL SUCCINATE [Concomitant]
     Route: 048
  7. OLMESARTAN MEDOXOMIL [Concomitant]
     Route: 048
  8. OMEPRAZOLE [Concomitant]
     Route: 048
  9. SIMVASTATIN [Concomitant]
     Route: 048
  10. ASPARTAME [Concomitant]

REACTIONS (2)
  - HYPONATRAEMIA [None]
  - INAPPROPRIATE ANTIDIURETIC HORMONE SECRETION [None]
